FAERS Safety Report 9236869 (Version 2)
Quarter: 2014Q1

REPORT INFORMATION
  Report Type: Spontaneous
  Country: KR (occurrence: KR)
  Receive Date: 20130417
  Receipt Date: 20140311
  Transmission Date: 20141002
  Serious: Yes (Other)
  Sender: FDA-Public Use
  Company Number: KR-JNJFOC-20130406644

PATIENT
  Age: 48 Year
  Sex: Male
  Weight: 76 kg

DRUGS (4)
  1. TRAMADOL [Suspect]
     Indication: PAIN
     Route: 065
  2. ACETAMINOPHEN [Suspect]
     Route: 048
  3. ACETAMINOPHEN [Suspect]
     Indication: PAIN
     Route: 048
  4. KETAMINE [Suspect]
     Indication: PAIN
     Route: 042

REACTIONS (2)
  - Hepatitis [Unknown]
  - Dizziness [Unknown]
